FAERS Safety Report 23225947 (Version 1)
Quarter: 2023Q4

REPORT INFORMATION
  Report Type: Report from Study
  Country: US (occurrence: None)
  Receive Date: 20231124
  Receipt Date: 20231124
  Transmission Date: 20240110
  Serious: Yes (Death, Other)
  Sender: FDA-Public Use
  Company Number: 2023A265218

PATIENT
  Sex: Female

DRUGS (1)
  1. TAGRISSO [Suspect]
     Active Substance: OSIMERTINIB
     Indication: Non-small cell lung cancer
     Route: 048
     Dates: start: 20230912

REACTIONS (5)
  - Death [Fatal]
  - Lung carcinoma cell type unspecified stage IV [Unknown]
  - Sepsis [Unknown]
  - Pneumonia [Unknown]
  - Cardiac failure congestive [Unknown]
